FAERS Safety Report 7610539-3 (Version None)
Quarter: 2011Q3

REPORT INFORMATION
  Report Type: 
  Country: None (occurrence: None)
  Receive Date: 20110707
  Receipt Date: 20110623
  Transmission Date: 20111222
  Serious: Yes (Hospitalization, Other)
  Sender: FDA-Public Use
  Company Number: 2011MA007211

PATIENT
  Age: 59 Year
  Sex: Male
  Weight: 96 kg

DRUGS (3)
  1. RISPERIDONE [Concomitant]
  2. LORAZEPAM [Concomitant]
  3. BUPROPION HYDROCHLORIDE EXTENDED RELEASE TABLETS (XL), ASALLC [Suspect]
     Indication: DEPRESSION
     Dosage: 150 MG;1X;

REACTIONS (2)
  - HEPATITIS TOXIC [None]
  - HEPATOCELLULAR INJURY [None]
